FAERS Safety Report 12247033 (Version 4)
Quarter: 2016Q2

REPORT INFORMATION
  Report Type: Report from Study
  Country: US (occurrence: US)
  Receive Date: 20160407
  Receipt Date: 20160523
  Transmission Date: 20160815
  Serious: Yes (Other)
  Sender: FDA-Public Use
  Company Number: PHEH2016US008482

PATIENT
  Age: 54 Year
  Sex: Female

DRUGS (1)
  1. GILENYA [Suspect]
     Active Substance: FINGOLIMOD HYDROCHLORIDE
     Indication: MULTIPLE SCLEROSIS
     Dosage: UNK, QD
     Route: 048
     Dates: start: 20160215

REACTIONS (9)
  - Visual acuity reduced [Unknown]
  - Asthenopia [Unknown]
  - Retinal vein occlusion [Unknown]
  - Eye haemorrhage [Unknown]
  - Cystoid macular oedema [Unknown]
  - Visual impairment [Unknown]
  - Blindness unilateral [Unknown]
  - Eye swelling [Unknown]
  - Vision blurred [Unknown]

NARRATIVE: CASE EVENT DATE: 20160324
